FAERS Safety Report 5695547-4 (Version None)
Quarter: 2008Q2

REPORT INFORMATION
  Report Type: 
  Country: None (occurrence: None)
  Receive Date: 20080407
  Receipt Date: 20080325
  Transmission Date: 20081010
  Serious: Yes (Other)
  Sender: FDA-Public Use
  Company Number: US-JNJFOC-20080306132

PATIENT
  Sex: Female
  Weight: 3.45 kg

DRUGS (10)
  1. REMICADE [Suspect]
  2. REMICADE [Suspect]
  3. REMICADE [Suspect]
     Indication: DRUG EXPOSURE DURING PREGNANCY
  4. VITAMIN TAB [Concomitant]
     Indication: DRUG EXPOSURE DURING PREGNANCY
  5. SLO FE [Concomitant]
     Indication: DRUG EXPOSURE DURING PREGNANCY
  6. DIPHENHYDRAMINE HCL [Concomitant]
  7. DIPHENHYDRAMINE HCL [Concomitant]
  8. DIPHENHYDRAMINE HCL [Concomitant]
     Indication: DRUG EXPOSURE DURING PREGNANCY
  9. PITOCIN [Concomitant]
     Indication: DRUG EXPOSURE DURING PREGNANCY
  10. UNSPECIFIED THERAPY [Concomitant]
     Indication: DRUG EXPOSURE DURING PREGNANCY

REACTIONS (1)
  - JAUNDICE NEONATAL [None]
